FAERS Safety Report 7874750-9 (Version None)
Quarter: 2011Q4

REPORT INFORMATION
  Report Type: 
  Country: None (occurrence: None)
  Receive Date: 20111031
  Receipt Date: 20111024
  Transmission Date: 20120403
  Serious: No
  Sender: FDA-Public Use
  Company Number: US-PFIZER INC-2011259240

PATIENT
  Sex: Male

DRUGS (2)
  1. ALAVERT [Suspect]
     Indication: RHINORRHOEA
  2. ALAVERT [Suspect]
     Indication: NASAL CONGESTION
     Dosage: UNK

REACTIONS (1)
  - DRUG INEFFECTIVE [None]
